FAERS Safety Report 21830507 (Version 3)
Quarter: 2023Q2

REPORT INFORMATION
  Report Type: Spontaneous
  Country: US (occurrence: US)
  Receive Date: 20230106
  Receipt Date: 20230630
  Transmission Date: 20230722
  Serious: No
  Sender: FDA-Public Use
  Company Number: US-PHARMING-PHAUS2023000017

PATIENT

DRUGS (5)
  1. RUCONEST [Suspect]
     Active Substance: HUMAN C1-ESTERASE INHIBITOR
     Indication: Hereditary angioedema
     Dosage: 2100 IU, TWICE WEEKLY
     Route: 042
     Dates: start: 20160423
  2. RUCONEST [Suspect]
     Active Substance: HUMAN C1-ESTERASE INHIBITOR
     Dosage: 4200 IU, ONCE WEEKLY
     Route: 042
     Dates: start: 20160423
  3. RUCONEST [Suspect]
     Active Substance: HUMAN C1-ESTERASE INHIBITOR
     Dosage: 2100 IU, TWICE WEEKLY
     Route: 042
     Dates: start: 20160425
  4. RUCONEST [Suspect]
     Active Substance: HUMAN C1-ESTERASE INHIBITOR
     Dosage: 4200 IU, ONCE WEEKLY
     Route: 042
     Dates: start: 20160425
  5. KALBITOR [Concomitant]
     Active Substance: ECALLANTIDE
     Indication: Hereditary angioedema

REACTIONS (3)
  - Homeless [Unknown]
  - Product dose omission issue [Unknown]
  - Intentional product use issue [Unknown]
